FAERS Safety Report 7097053-1 (Version None)
Quarter: 2010Q4

REPORT INFORMATION
  Report Type: 
  Country: None (occurrence: None)
  Receive Date: 20101111
  Receipt Date: 20101103
  Transmission Date: 20110411
  Serious: Yes (Other)
  Sender: FDA-Public Use
  Company Number: CA-BAYER-201025354NA

PATIENT
  Age: 33 Year
  Sex: Female
  Weight: 55 kg

DRUGS (3)
  1. AVELOX [Suspect]
     Indication: ACUTE SINUSITIS
     Dosage: ONE PILL
     Route: 048
  2. TRAMADOL HCL [Concomitant]
  3. ZITHROMAX [Concomitant]

REACTIONS (11)
  - ARTHRALGIA [None]
  - ASTHENIA [None]
  - BACK PAIN [None]
  - BURNING SENSATION [None]
  - DISORIENTATION [None]
  - DIZZINESS [None]
  - DYSSTASIA [None]
  - HYPOKINESIA [None]
  - NAUSEA [None]
  - PALPITATIONS [None]
  - VOMITING [None]
